FAERS Safety Report 6354323-X (Version None)
Quarter: 2009Q3

REPORT INFORMATION
  Report Type: 
  Country: None (occurrence: None)
  Receive Date: 20090914
  Receipt Date: 20090903
  Transmission Date: 20100115
  Serious: Yes (Other)
  Sender: FDA-Public Use
  Company Number: DK-JNJFOC-20090709064

PATIENT
  Sex: Male
  Weight: 122 kg

DRUGS (6)
  1. REMICADE [Suspect]
     Route: 042
  2. REMICADE [Suspect]
     Indication: COLITIS ULCERATIVE
     Route: 042
  3. NSAID [Suspect]
     Indication: ARTHRITIS
  4. NSAID [Suspect]
     Indication: MYALGIA
  5. DICLOFENAC SODIUM [Suspect]
     Indication: DRUG USE FOR UNKNOWN INDICATION
  6. MAREVAN [Concomitant]
     Dosage: IN DIFFERENT DOSES
     Route: 048

REACTIONS (7)
  - ARTHRITIS [None]
  - CARDIAC DISORDER [None]
  - FLUID RETENTION [None]
  - MYALGIA [None]
  - SLEEP DISORDER [None]
  - SYNOVITIS [None]
  - WEIGHT INCREASED [None]
